FAERS Safety Report 5960923-9 (Version None)
Quarter: 2008Q4

REPORT INFORMATION
  Report Type: 
  Country: None (occurrence: None)
  Receive Date: 20081119
  Receipt Date: 20081107
  Transmission Date: 20090506
  Serious: Yes (Other)
  Sender: FDA-Public Use
  Company Number: US025001

PATIENT

DRUGS (1)
  1. GABITRIL [Suspect]
     Dosage: 16 MG ONCE ORAL
     Route: 048

REACTIONS (2)
  - DELIRIUM [None]
  - MUSCLE TWITCHING [None]
